FAERS Safety Report 16599143 (Version 1)
Quarter: 2019Q3

REPORT INFORMATION
  Report Type: Spontaneous
  Country: DE (occurrence: DE)
  Receive Date: 20190719
  Receipt Date: 20190719
  Transmission Date: 20191004
  Serious: Yes (Hospitalization, Other)
  Sender: FDA-Public Use
  Company Number: DE-PFIZER INC-2019302297

PATIENT
  Age: 53 Year
  Sex: Male

DRUGS (9)
  1. TRAMADOL. [Suspect]
     Active Substance: TRAMADOL
     Dosage: 200 MG, UNK (1-0-1-0)
  2. METOPROLOL. [Concomitant]
     Active Substance: METOPROLOL
     Dosage: 95 MG, UNK (1-0-1-0)
  3. RAMIPRIL. [Concomitant]
     Active Substance: RAMIPRIL
     Dosage: 5 MG, UNK (1-0-0-0)
  4. ACETYLSALICYLIC ACID/CAFFEINE [Suspect]
     Active Substance: ASPIRIN\CAFFEINE
     Dosage: 100 MG, UNK (0-1-0-0)
  5. SPIRONOLACTON [Concomitant]
     Active Substance: SPIRONOLACTONE
     Dosage: 50 MG, UNK (1-0-0-0)
  6. GABAPENTIN. [Suspect]
     Active Substance: GABAPENTIN
     Dosage: 600 MG, UNK (1-0-0-0)
  7. SIMVASTATIN. [Concomitant]
     Active Substance: SIMVASTATIN
     Dosage: 40 MG, UNK (0-0-1-0)
  8. ISOSORBID DINITRATE [Concomitant]
     Active Substance: ISOSORBIDE DINITRATE
     Dosage: 20 MG, UNK (1-1-0-0)
  9. PANTOPRAZOLE [Concomitant]
     Active Substance: PANTOPRAZOLE
     Dosage: 40 MG, UNK (0-0-1-0)

REACTIONS (4)
  - Vomiting [Unknown]
  - Abdominal pain lower [Unknown]
  - Constipation [Unknown]
  - Syncope [Unknown]
